FAERS Safety Report 6055008-X (Version None)
Quarter: 2009Q1

REPORT INFORMATION
  Report Type: 
  Country: None (occurrence: None)
  Receive Date: 20090122
  Receipt Date: 20090114
  Transmission Date: 20090719
  Serious: Yes (Hospitalization)
  Sender: FDA-Public Use
  Company Number: GXKR2009DE00689

PATIENT
  Age: 58 Year
  Sex: Male
  Weight: 106 kg

DRUGS (13)
  1. ASS 100 HEXAL (NGX) (ACETYLSALICYLIC ACID) TABLET, 100MG [Suspect]
     Indication: PROPHYLAXIS
     Dosage: 100 MG, ORAL
     Route: 048
  2. VOLTAREN [Suspect]
     Indication: OSTEOARTHRITIS
     Dosage: 50 MG, TID, ORAL
     Route: 048
     Dates: start: 20080701, end: 20080819
  3. ALLOPURINOL [Concomitant]
  4. BIPRETERAX (INDAPAMIDE, PERINDOPRIL ERBUMINE) [Concomitant]
  5. BYETTA [Concomitant]
  6. CORDINATE (VALSARTAN) [Concomitant]
  7. THEOPHYLLINE [Concomitant]
  8. INEGY (EZETIMIBE, SIMVASTATIN) [Concomitant]
  9. METFORMIN HCL [Concomitant]
  10. RASILEZ (ALISKIREN) [Concomitant]
  11. SPIRIVA [Concomitant]
  12. SPIRONOLACTONE [Concomitant]
  13. SYMBICORT [Concomitant]

REACTIONS (4)
  - ANOREXIA [None]
  - FAECES DISCOLOURED [None]
  - NAUSEA [None]
  - WEIGHT DECREASED [None]
